FAERS Safety Report 8986466 (Version 1)
Quarter: 2012Q4

REPORT INFORMATION
  Report Type: 
  Country: US (occurrence: US)
  Receive Date: 20121227
  Receipt Date: 20121227
  Transmission Date: 20130627
  Serious: Yes (Hospitalization, Other)
  Sender: FDA-Public Use
  Company Number: PHHY2012US118950

PATIENT
  Age: 33 Year
  Sex: Female

DRUGS (9)
  1. PREDNISONE [Suspect]
     Indication: CHRONIC GRAFT VERSUS HOST DISEASE
     Dosage: 2 mg/kg, UNK
  2. VORICONAZOLE [Suspect]
     Indication: ANTIFUNGAL TREATMENT
     Dosage: 200 mg, BID
     Route: 048
  3. AMPHOTERICIN B, LIPOSOME [Concomitant]
     Indication: ANTIFUNGAL TREATMENT
     Dosage: 5 mg, QID
  4. AMPHOTERICIN B, LIPOSOME [Concomitant]
     Dosage: 5 mg/kg, UNK
     Route: 042
  5. TACROLIMUS [Concomitant]
     Indication: CHRONIC GRAFT VERSUS HOST DISEASE
     Dosage: 1.5 mg, UNK
  6. TACROLIMUS [Concomitant]
     Dosage: 0.5 mg, UNK
  7. TACROLIMUS [Concomitant]
     Dosage: 0.5 mg, QID
  8. TRIMETHOPRIM SULFAMETHOXAZOLE [Concomitant]
     Indication: PROPHYLAXIS
  9. ACYCLOVIR [Concomitant]
     Indication: PROPHYLAXIS

REACTIONS (19)
  - Zygomycosis [Recovered/Resolved]
  - Osteomyelitis [Recovered/Resolved]
  - Pain [Recovered/Resolved]
  - Tenderness [Recovered/Resolved]
  - Feeling hot [Recovered/Resolved]
  - Erythema [Recovered/Resolved]
  - Weight bearing difficulty [Recovered/Resolved]
  - Bone marrow oedema [Recovered/Resolved]
  - Periostitis [Recovered/Resolved]
  - Oedema peripheral [Recovered/Resolved]
  - Inflammation [Recovered/Resolved]
  - Fluid retention [Recovered/Resolved]
  - Cellulitis [Recovered/Resolved]
  - Ingrowing nail [Recovered/Resolved]
  - H1N1 influenza [Recovered/Resolved]
  - Chronic graft versus host disease [Recovered/Resolved]
  - Transaminases increased [Recovered/Resolved]
  - Rash erythematous [Recovered/Resolved]
  - Rash pruritic [Recovered/Resolved]
